FAERS Safety Report 9614403 (Version 1)
Quarter: 2013Q4

REPORT INFORMATION
  Report Type: Spontaneous
  Country: FR (occurrence: FR)
  Receive Date: 20131011
  Receipt Date: 20131011
  Transmission Date: 20140711
  Serious: Yes (Hospitalization)
  Sender: FDA-Public Use
  Company Number: FR-JNJFOC-20131006755

PATIENT
  Age: 68 Year
  Sex: Male

DRUGS (16)
  1. TOPALGIC [Suspect]
     Indication: PAIN
     Route: 048
     Dates: start: 20130824, end: 20130827
  2. TOPALGIC [Suspect]
     Indication: PAIN
     Route: 048
     Dates: start: 20130821, end: 20130823
  3. TOPALGIC L.P. 100 MG [Suspect]
     Indication: PAIN
     Route: 048
     Dates: start: 20130821, end: 20130823
  4. PAMIDRONATE DISODIUM [Suspect]
     Indication: PLASMA CELL MYELOMA
     Route: 042
     Dates: start: 20130821, end: 20130821
  5. PRIMPERAN [Suspect]
     Indication: NAUSEA
     Route: 048
     Dates: start: 20130826, end: 20130827
  6. DOLIPRANE [Suspect]
     Indication: PAIN
     Route: 048
     Dates: start: 20130823, end: 20130826
  7. ALPRAZOLAM [Suspect]
     Indication: ANXIETY
     Route: 048
     Dates: start: 20130822, end: 20130827
  8. KARDEGIC [Concomitant]
     Indication: PRODUCT USED FOR UNKNOWN INDICATION
     Route: 065
  9. TAHOR [Concomitant]
     Indication: PRODUCT USED FOR UNKNOWN INDICATION
     Route: 065
  10. AMLODIPINE [Concomitant]
     Indication: PRODUCT USED FOR UNKNOWN INDICATION
     Route: 065
  11. ACEBUTOLOL [Concomitant]
     Indication: PRODUCT USED FOR UNKNOWN INDICATION
     Route: 065
  12. LOVENOX [Concomitant]
     Indication: PROPHYLAXIS
     Route: 058
     Dates: start: 20130821
  13. MORPHINE RENAUDIN [Concomitant]
     Indication: PAIN
     Route: 042
     Dates: start: 20130822, end: 20130830
  14. ESOMEPRAZOLE [Concomitant]
     Indication: PRODUCT USED FOR UNKNOWN INDICATION
     Route: 065
  15. FORLAX [Concomitant]
     Indication: CONSTIPATION
     Route: 048
     Dates: start: 20130826, end: 20130826
  16. DEXAMETHASONE [Concomitant]
     Indication: PLASMA CELL MYELOMA
     Route: 042
     Dates: start: 20130821, end: 20130824

REACTIONS (1)
  - Hepatocellular injury [Recovered/Resolved]
